FAERS Safety Report 8392211-8 (Version None)
Quarter: 2012Q2

REPORT INFORMATION
  Report Type: 
  Country: None (occurrence: None)
  Receive Date: 20120529
  Receipt Date: 20120515
  Transmission Date: 20120825
  Serious: Yes (Death)
  Sender: FDA-Public Use
  Company Number: CH-ROCHE-1067470

PATIENT
  Age: 88 Year
  Sex: Female

DRUGS (8)
  1. CO-ENAC [Concomitant]
     Route: 048
     Dates: end: 20120306
  2. VALSARTAN [Concomitant]
     Route: 048
     Dates: start: 20120229
  3. BENDAMUSTINE [Suspect]
     Indication: B-CELL LYMPHOMA
     Dosage: DATE OF LAST DOSE PRIOR TO SAE: 03/MAY/2012
     Route: 042
     Dates: start: 20111213
  4. METOPROLOL TARTRATE AND HYDROCHLOROTHIAZIDE [Concomitant]
     Route: 048
  5. LENALIDOMIDE [Suspect]
     Indication: B-CELL LYMPHOMA
     Dosage: DATE OF LAST DOSE PRIOR TO SAE: 20/MAR/2012
     Route: 048
     Dates: start: 20111213
  6. LENALIDOMIDE [Suspect]
     Dosage: DATE OF LAST DOSE PRIOR TO SAE: 07/MAY/2012
     Route: 048
     Dates: start: 20120403
  7. MABTHERA [Suspect]
     Indication: B-CELL LYMPHOMA
     Dosage: DATE OF LAST DOSE PRIOR TO SAE: 02/MAY/2012
     Route: 042
     Dates: start: 20111213
  8. ASPIRIN [Concomitant]
     Route: 048

REACTIONS (1)
  - CARDIAC DISORDER [None]
